FAERS Safety Report 12904824 (Version 5)
Quarter: 2018Q2

REPORT INFORMATION
  Report Type: Report from Study
  Country: US (occurrence: US)
  Receive Date: 20161102
  Receipt Date: 20180629
  Transmission Date: 20180711
  Serious: Yes (Hospitalization)
  Sender: FDA-Public Use
  Company Number: US-ACTELION-A-US2016-144741

PATIENT
  Age: 30 Year
  Sex: Male
  Weight: 70.75 kg

DRUGS (5)
  1. VELETRI [Suspect]
     Active Substance: EPOPROSTENOL
     Dosage: UNK
     Route: 042
     Dates: start: 20100713
  2. OPSUMIT [Suspect]
     Active Substance: MACITENTAN
     Indication: PULMONARY ARTERIAL HYPERTENSION
     Dosage: 10 MG, QD
     Route: 048
     Dates: start: 20151015
  3. VELETRI [Suspect]
     Active Substance: EPOPROSTENOL
     Indication: PULMONARY ARTERIAL HYPERTENSION
     Dosage: 74 NG/KG, PER MIN
     Route: 042
     Dates: start: 2011
  4. COUMADIN [Concomitant]
     Active Substance: WARFARIN SODIUM
  5. ADCIRCA [Concomitant]
     Active Substance: TADALAFIL
     Dosage: UNK

REACTIONS (22)
  - Catheter management [Recovered/Resolved]
  - Deep vein thrombosis [Unknown]
  - Peripheral swelling [Unknown]
  - Device occlusion [Recovered/Resolved]
  - Pulmonary hypertension [Unknown]
  - Chest pain [Unknown]
  - Tobacco user [Unknown]
  - Thrombocytopenia [Unknown]
  - Nasopharyngitis [Unknown]
  - Abdominal pain [Unknown]
  - Pericardial effusion [Unknown]
  - HIV test positive [Unknown]
  - Sleep apnoea syndrome [Unknown]
  - Abscess [Unknown]
  - Abscess drainage [Unknown]
  - Trans-sexualism [Unknown]
  - Back pain [Unknown]
  - Dyspnoea [Unknown]
  - Device alarm issue [Recovered/Resolved]
  - Thrombosis in device [Recovered/Resolved]
  - Hypoxia [Unknown]
  - Acute respiratory failure [Unknown]

NARRATIVE: CASE EVENT DATE: 20170315
